FAERS Safety Report 18345739 (Version 2)
Quarter: 2020Q4

REPORT INFORMATION
  Report Type: Spontaneous
  Country: IE (occurrence: IE)
  Receive Date: 20201005
  Receipt Date: 20201120
  Transmission Date: 20210114
  Serious: Yes (Life-Threatening, Hospitalization, Other)
  Sender: FDA-Public Use
  Company Number: IE-MYLANLABS-2020M1073253

PATIENT
  Age: 67 Year
  Sex: Male

DRUGS (3)
  1. CLOZARIL [Suspect]
     Active Substance: CLOZAPINE
     Dosage: UNK
     Route: 048
  2. PANTOPRAZOLE [Concomitant]
     Active Substance: PANTOPRAZOLE
     Indication: REFLUX GASTRITIS
     Dosage: 40 MILLIGRAM, QD
     Route: 048
     Dates: start: 2018
  3. CLOZARIL [Suspect]
     Active Substance: CLOZAPINE
     Indication: SCHIZOPHRENIA
     Dosage: UNK
     Route: 048
     Dates: start: 20120824, end: 202008

REACTIONS (7)
  - Terminal state [Unknown]
  - Intestinal obstruction [Recovered/Resolved]
  - Metastases to bone [Unknown]
  - Constipation [Unknown]
  - Neoplasm malignant [Unknown]
  - Pulmonary mass [Unknown]
  - Pneumonia [Unknown]

NARRATIVE: CASE EVENT DATE: 20200727
